FAERS Safety Report 5932900-5 (Version None)
Quarter: 2008Q4

REPORT INFORMATION
  Report Type: 
  Country: None (occurrence: None)
  Receive Date: 20081028
  Receipt Date: 20081022
  Transmission Date: 20090506
  Serious: Yes (Hospitalization, Other)
  Sender: FDA-Public Use
  Company Number: JP-AVENTIS-200813033JP

PATIENT
  Age: 79 Year
  Sex: Female
  Weight: 40 kg

DRUGS (4)
  1. TAXOTERE [Suspect]
     Indication: BREAST CANCER METASTATIC
     Route: 041
     Dates: start: 20080724, end: 20080724
  2. TAXOTERE [Suspect]
     Route: 041
     Dates: start: 20080924, end: 20080924
  3. TS-1 [Concomitant]
     Dates: start: 20071018, end: 20080601
  4. XELODA [Concomitant]
     Dates: start: 20080601, end: 20080701

REACTIONS (5)
  - ANOREXIA [None]
  - CONFUSIONAL STATE [None]
  - DISORIENTATION [None]
  - HALLUCINATION [None]
  - WHITE BLOOD CELL COUNT DECREASED [None]
